FAERS Safety Report 7800187-4 (Version None)
Quarter: 2011Q4

REPORT INFORMATION
  Report Type: 
  Country: None (occurrence: None)
  Receive Date: 20111006
  Receipt Date: 20110929
  Transmission Date: 20120403
  Serious: Yes (Other)
  Sender: FDA-Public Use
  Company Number: BE-UCBSA-042364

PATIENT
  Sex: Male

DRUGS (3)
  1. VIMPAT [Suspect]
     Indication: EPILEPSY
  2. CARBAMAZEPINE [Concomitant]
     Indication: EPILEPSY
  3. VALPROIC ACID [Concomitant]
     Indication: EPILEPSY

REACTIONS (2)
  - INFERTILITY MALE [None]
  - SEMEN ANALYSIS ABNORMAL [None]
